FAERS Safety Report 8695760 (Version 2)
Quarter: 2013Q1

REPORT INFORMATION
  Report Type: Spontaneous
  Country: US (occurrence: US)
  Receive Date: 20120731
  Receipt Date: 20130305
  Transmission Date: 20140127
  Serious: Yes (Other)
  Sender: FDA-Public Use
  Company Number: CHPA2012US016321

PATIENT
  Age: 72 Year
  Sex: Female

DRUGS (3)
  1. MAALOX ANTACID/ANTIGAS MS LIQ COOL MINT [Suspect]
     Indication: MUSCLE SPASMS
     Dosage: 1 TBL ONCE OR TWICE A DAY
     Route: 048
     Dates: end: 2012
  2. MAALOX ANTACID/ANTIGAS RS LIQ COOL MINT [Suspect]
     Indication: FLATULENCE
     Dosage: 3 TSP, ONCE OR TWICE A DAY, PRN
     Route: 048
  3. LOTREL [Concomitant]
     Indication: HYPERTENSION
     Dosage: UNK, UNK

REACTIONS (4)
  - Diverticulitis [Not Recovered/Not Resolved]
  - Gastritis [Unknown]
  - Irritable bowel syndrome [Unknown]
  - Therapeutic response unexpected [Unknown]
